FAERS Safety Report 4433613-1 (Version None)
Quarter: 2004Q3

REPORT INFORMATION
  Report Type: 
  Country: None (occurrence: None)
  Receive Date: 20040826
  Receipt Date: 20040713
  Transmission Date: 20050211
  Serious: Yes (Hospitalization)
  Sender: FDA-Public Use
  Company Number: PHEH2004US07552

PATIENT
  Age: 55 Year
  Sex: Male

DRUGS (6)
  1. CLOZARIL [Suspect]
     Dosage: 700 MG/DAY
     Route: 048
  2. BUSPAR [Concomitant]
  3. OMEPRAZOLE [Concomitant]
  4. METOPROLOL [Concomitant]
  5. FLORINEF [Concomitant]
  6. ZOCOR [Concomitant]

REACTIONS (6)
  - DIZZINESS [None]
  - HEART RATE INCREASED [None]
  - HYPERTROPHIC OBSTRUCTIVE CARDIOMYOPATHY [None]
  - HYPOTENSION [None]
  - SYNCOPE [None]
  - VENTRICULAR HYPERTROPHY [None]
